FAERS Safety Report 13738108 (Version 1)
Quarter: 2017Q3

REPORT INFORMATION
  Report Type: Report from Study
  Country: US (occurrence: US)
  Receive Date: 20170710
  Receipt Date: 20170710
  Transmission Date: 20171127
  Serious: Yes (Hospitalization)
  Sender: FDA-Public Use
  Company Number: US-BIOGEN-2012BI022578

PATIENT
  Age: 36 Year
  Sex: Female

DRUGS (4)
  1. REBIF [Concomitant]
     Active Substance: INTERFERON BETA-1A
     Indication: PRODUCT USED FOR UNKNOWN INDICATION
     Route: 065
  2. AVONEX [Suspect]
     Active Substance: INTERFERON BETA-1A
     Indication: MULTIPLE SCLEROSIS
     Route: 030
     Dates: start: 19990412, end: 20120601
  3. AVONEX [Suspect]
     Active Substance: INTERFERON BETA-1A
     Route: 030
     Dates: start: 2005, end: 20120601
  4. AVONEX [Suspect]
     Active Substance: INTERFERON BETA-1A
     Route: 030
     Dates: start: 20130401

REACTIONS (7)
  - Headache [Recovered/Resolved]
  - Nausea [Recovered/Resolved]
  - Chills [Recovered/Resolved]
  - Pulmonary embolism [Recovered/Resolved]
  - Bladder disorder [Recovered/Resolved with Sequelae]
  - Pain [Recovered/Resolved]
  - Influenza like illness [Recovered/Resolved with Sequelae]

NARRATIVE: CASE EVENT DATE: 19990412
